FAERS Safety Report 6992785-5 (Version None)
Quarter: 2010Q3

REPORT INFORMATION
  Report Type: 
  Country: None (occurrence: None)
  Receive Date: 20100917
  Receipt Date: 20100914
  Transmission Date: 20110219
  Serious: Yes (Death)
  Sender: FDA-Public Use
  Company Number: A0876333A

PATIENT
  Age: 64 Year
  Sex: Female

DRUGS (11)
  1. TYKERB [Suspect]
     Dosage: 1000MG PER DAY
     Route: 048
     Dates: start: 20100806
  2. XELODA [Concomitant]
  3. HERCEPTIN [Concomitant]
  4. DECADRON [Concomitant]
  5. ATIVAN [Concomitant]
  6. ZOFRAN [Concomitant]
  7. HYDROMORPHONE HCL [Concomitant]
  8. MULTI-VITAMINS [Concomitant]
  9. CALCIUM [Concomitant]
  10. DIFLUCAN [Concomitant]
  11. LEVOXYL [Concomitant]

REACTIONS (3)
  - DEATH [None]
  - FATIGUE [None]
  - MUSCULAR WEAKNESS [None]
